FAERS Safety Report 8364395-9 (Version None)
Quarter: 2012Q2

REPORT INFORMATION
  Report Type: 
  Country: None (occurrence: None)
  Receive Date: 20120516
  Receipt Date: 20120514
  Transmission Date: 20120825
  Serious: Yes (Disabling, Other)
  Sender: FDA-Public Use
  Company Number: US-ABBOTT-12P-163-0934884-00

PATIENT
  Sex: Male

DRUGS (2)
  1. LUPRON DEPOT [Suspect]
     Indication: PROSTATE CANCER
     Route: 050
     Dates: start: 20100601
  2. LUPRON DEPOT [Suspect]
     Route: 050
     Dates: start: 20100901

REACTIONS (14)
  - GENERAL PHYSICAL HEALTH DETERIORATION [None]
  - HOT FLUSH [None]
  - FEELING ABNORMAL [None]
  - FEELING HOT [None]
  - POLYGLANDULAR DISORDER [None]
  - DIZZINESS [None]
  - DYSSTASIA [None]
  - PANIC ATTACK [None]
  - SYNCOPE [None]
  - ASTHENIA [None]
  - QUALITY OF LIFE DECREASED [None]
  - UNEVALUABLE EVENT [None]
  - MOOD SWINGS [None]
  - ABASIA [None]
